FAERS Safety Report 19447252 (Version 1)
Quarter: 2021Q2

REPORT INFORMATION
  Report Type: Spontaneous
  Country: US (occurrence: US)
  Receive Date: 20210621
  Receipt Date: 20210621
  Transmission Date: 20210717
  Serious: Yes (Death)
  Sender: FDA-Public Use
  Company Number: None

PATIENT
  Age: 75 Year
  Sex: Male
  Weight: 77.85 kg

DRUGS (21)
  1. AMLODIPINE 2.5MG [Concomitant]
     Active Substance: AMLODIPINE BESYLATE
  2. LOSARTAN 50MG [Concomitant]
     Active Substance: LOSARTAN
  3. SODIUM CHLORIDE. [Concomitant]
     Active Substance: SODIUM CHLORIDE
  4. ABIRATERONE. [Suspect]
     Active Substance: ABIRATERONE ACETATE
     Indication: PROSTATE CANCER
     Route: 048
     Dates: start: 20201211, end: 20210617
  5. ATORVASTATIN 10MG [Concomitant]
     Active Substance: ATORVASTATIN
  6. GABAPENTIN 100MG [Concomitant]
     Active Substance: GABAPENTIN
  7. ISOSORBIDE MONONITRATE 10MG [Concomitant]
  8. MECLIZINE 12.5MG [Concomitant]
  9. ALIGN 4MG [Concomitant]
  10. FINASTERIDE 5MG [Concomitant]
     Active Substance: FINASTERIDE
  11. PROCHLORPERAZINE 10MG [Concomitant]
  12. ZOLOFT [Concomitant]
     Active Substance: SERTRALINE HYDROCHLORIDE
  13. CRANBERRY EXTRACT 200MG [Concomitant]
  14. LUPRON DEPOT 45MG [Concomitant]
  15. LEVEMIR 100UNIT/ML [Concomitant]
  16. PREDNISONE 10MG [Concomitant]
     Active Substance: PREDNISONE
  17. VANCOMYCIN 125MG [Concomitant]
  18. AUGMENTIN [Concomitant]
     Active Substance: AMOXICILLIN\CLAVULANATE POTASSIUM
  19. VITAMIN C [Concomitant]
     Active Substance: ASCORBIC ACID
  20. HEPARIN LOCK FLUSH [Concomitant]
     Active Substance: HEPARIN SODIUM
  21. METOPROLOL SUCCINATE 100MG [Concomitant]

REACTIONS (1)
  - Death [None]

NARRATIVE: CASE EVENT DATE: 20210617
